FAERS Safety Report 4409584-0 (Version None)
Quarter: 2004Q3

REPORT INFORMATION
  Report Type: 
  Country: None (occurrence: None)
  Receive Date: 20040728
  Receipt Date: 20021129
  Transmission Date: 20050211
  Serious: Yes (Life-Threatening)
  Sender: FDA-Public Use
  Company Number: US-BRISTOL-MYERS SQUIBB COMPANY-12130688

PATIENT
  Age: 32 Year
  Sex: Male

DRUGS (3)
  1. EFAVIRENZ [Suspect]
     Indication: HIV INFECTION
     Route: 048
     Dates: start: 19990801
  2. STAVUDINE [Suspect]
     Indication: HIV INFECTION
     Dates: start: 19990801
  3. LAMIVUDINE [Suspect]
     Indication: HIV INFECTION
     Dates: start: 19990801

REACTIONS (15)
  - ABDOMINAL PAIN [None]
  - BASEDOW'S DISEASE [None]
  - CHEST PAIN [None]
  - CONDITION AGGRAVATED [None]
  - CYTOMEGALOVIRUS OESOPHAGITIS [None]
  - GOITRE [None]
  - IMMUNE RECONSTITUTION SYNDROME [None]
  - INFLAMMATION [None]
  - LUNG NEOPLASM [None]
  - LYMPHADENITIS [None]
  - LYMPHADENOPATHY [None]
  - MALAISE [None]
  - OESOPHAGEAL ULCER [None]
  - PALPITATIONS [None]
  - PNEUMONIA CYTOMEGALOVIRAL [None]
